FAERS Safety Report 5022083-0 (Version None)
Quarter: 2006Q2

REPORT INFORMATION
  Report Type: 
  Country: None (occurrence: None)
  Receive Date: 20060605
  Receipt Date: 20060524
  Transmission Date: 20061013
  Serious: Yes (Other)
  Sender: FDA-Public Use
  Company Number: 2006068644

PATIENT
  Sex: Male

DRUGS (6)
  1. CABERGOLINE [Suspect]
     Indication: PARKINSON'S DISEASE
     Dosage: (6 MG)
  2. ELDEPRYL [Concomitant]
  3. SINEMET [Concomitant]
  4. NEXIUM [Concomitant]
  5. QUINSUL (QUININE SULFATE) [Concomitant]
  6. VALIUM [Concomitant]

REACTIONS (4)
  - BRONCHITIS [None]
  - COUGH [None]
  - OXYGEN SATURATION DECREASED [None]
  - PROCEDURAL COMPLICATION [None]
